FAERS Safety Report 15896738 (Version 1)
Quarter: 2019Q1

REPORT INFORMATION
  Report Type: Spontaneous
  Country: NL (occurrence: NL)
  Receive Date: 20190131
  Receipt Date: 20190131
  Transmission Date: 20190417
  Serious: Yes (Other)
  Sender: FDA-Public Use
  Company Number: NL-ASTRAZENECA-2019SE15294

PATIENT
  Age: 73 Year
  Sex: Male
  Weight: 100 kg

DRUGS (19)
  1. ROSUVASTATIN. [Suspect]
     Active Substance: ROSUVASTATIN
     Route: 048
  2. VANCOMYCIN [Suspect]
     Active Substance: VANCOMYCIN
     Indication: DEVICE RELATED INFECTION
     Dosage: 1.0DF UNKNOWN
     Route: 042
     Dates: start: 20181104, end: 20181117
  3. RIFAMPICINE [Suspect]
     Active Substance: RIFAMPIN
     Route: 065
     Dates: start: 20181025
  4. PRAMIPEXOLE. [Concomitant]
     Active Substance: PRAMIPEXOLE
  5. CLONAZEPAM. [Concomitant]
     Active Substance: CLONAZEPAM
  6. UREUMPOEDER 30G [Concomitant]
     Dosage: 1.0DF UNKNOWN
     Dates: start: 20181115
  7. LOSARTAN. [Concomitant]
     Active Substance: LOSARTAN
  8. CIPROFLOXACIN. [Suspect]
     Active Substance: CIPROFLOXACIN
     Route: 048
     Dates: start: 20181108
  9. ACETYLSALICYLIC ACID [Concomitant]
     Active Substance: ASPIRIN
  10. UREUMPOEDER 30G [Concomitant]
     Dosage: 1.0DF UNKNOWN
     Dates: start: 20181114, end: 20181115
  11. TAMSULOSIN [Concomitant]
     Active Substance: TAMSULOSIN
  12. PARACETAMOL [Concomitant]
     Active Substance: ACETAMINOPHEN
  13. LEVODOPA [Concomitant]
     Active Substance: LEVODOPA
     Dosage: 100/25MG 2 DF DAILY
  14. FENTANYL. [Concomitant]
     Active Substance: FENTANYL
     Dosage: 1.0DF UNKNOWN
     Dates: start: 20181116
  15. AMLODIPINE [Concomitant]
     Active Substance: AMLODIPINE BESYLATE
  16. ZOPICLON [Concomitant]
     Active Substance: ZOPICLONE
     Dates: start: 20181106
  17. LEVODOPA/CARBIDOPA [Concomitant]
     Active Substance: CARBIDOPA\LEVODOPA
  18. MIDAZOLAM [Concomitant]
     Active Substance: MIDAZOLAM HYDROCHLORIDE
     Dates: start: 20181112
  19. CLEMASTINE [Concomitant]
     Active Substance: CLEMASTINE
     Dosage: 1.0DF UNKNOWN
     Dates: start: 20181115

REACTIONS (1)
  - Toxic epidermal necrolysis [Recovered/Resolved]

NARRATIVE: CASE EVENT DATE: 20181116
